FAERS Safety Report 24709831 (Version 3)
Quarter: 2025Q1

REPORT INFORMATION
  Report Type: Report from Study
  Country: US (occurrence: US)
  Receive Date: 20241209
  Receipt Date: 20250119
  Transmission Date: 20250409
  Serious: No
  Sender: JOHNSON AND JOHNSON
  Company Number: US-JNJFOC-20241135142

PATIENT
  Age: 62 Year
  Sex: Female
  Weight: 80.29 kg

DRUGS (5)
  1. STELARA [Suspect]
     Active Substance: USTEKINUMAB
     Indication: Crohn^s disease
     Route: 058
     Dates: start: 20231219
  2. STELARA [Suspect]
     Active Substance: USTEKINUMAB
  3. DICLOFENAC [Concomitant]
     Active Substance: DICLOFENAC
  4. LOSARTAN [Concomitant]
     Active Substance: LOSARTAN
  5. VENLAFAXINE [Concomitant]
     Active Substance: VENLAFAXINE HYDROCHLORIDE

REACTIONS (4)
  - Device issue [Unknown]
  - Product dose omission issue [Unknown]
  - Accidental exposure to product [Unknown]
  - Off label use [Unknown]

NARRATIVE: CASE EVENT DATE: 20241115
